FAERS Safety Report 24450081 (Version 1)
Quarter: 2024Q4

REPORT INFORMATION
  Report Type: Other
  Country: US (occurrence: US)
  Receive Date: 20241017
  Receipt Date: 20241017
  Transmission Date: 20250115
  Serious: Yes (Hospitalization)
  Sender: WES PHARMA INC
  Company Number: US-WES Pharma Inc-2163218

PATIENT
  Age: 64 Year
  Sex: Male

DRUGS (17)
  1. BUPRENORPHINE HYDROCHLORIDE\NALOXONE HYDROCHLORIDE [Suspect]
     Active Substance: BUPRENORPHINE HYDROCHLORIDE\NALOXONE HYDROCHLORIDE
     Indication: Drug use disorder
  2. POTASSIUM CHLORIDE [Suspect]
     Active Substance: POTASSIUM CHLORIDE
  3. OMEPRAZOLE [Concomitant]
     Active Substance: OMEPRAZOLE
  4. SOFOSBUVIR\VELPATASVIR [Suspect]
     Active Substance: SOFOSBUVIR\VELPATASVIR
  5. ALBUTEROL [Suspect]
     Active Substance: ALBUTEROL
  6. ALBUTEROL\IPRATROPIUM BROMIDE [Suspect]
     Active Substance: ALBUTEROL\IPRATROPIUM BROMIDE
  7. GABAPENTIN [Suspect]
     Active Substance: GABAPENTIN
  8. SILDENAFIL [Suspect]
     Active Substance: SILDENAFIL
  9. CHOLECALCIFEROL [Suspect]
     Active Substance: CHOLECALCIFEROL
  10. DOCUSATE [Suspect]
     Active Substance: DOCUSATE
  11. FERROUS SULFATE [Suspect]
     Active Substance: FERROUS SULFATE
  12. ACYCLOVIR [Suspect]
     Active Substance: ACYCLOVIR
  13. TESTOSTERONE [Suspect]
     Active Substance: TESTOSTERONE
  14. GABAPENTIN [Suspect]
     Active Substance: GABAPENTIN
  15. FUROSEMIDE [Suspect]
     Active Substance: FUROSEMIDE
  16. PANTOPRAZOLE SODIUM [Suspect]
     Active Substance: PANTOPRAZOLE SODIUM
  17. BUPROPION [Suspect]
     Active Substance: BUPROPION

REACTIONS (3)
  - Mental status changes [Unknown]
  - Product use in unapproved indication [Unknown]
  - Drug interaction [Unknown]
